FAERS Safety Report 7569091-3 (Version None)
Quarter: 2011Q2

REPORT INFORMATION
  Report Type: 
  Country: None (occurrence: None)
  Receive Date: 20110623
  Receipt Date: 20110615
  Transmission Date: 20111010
  Serious: Yes (Other)
  Sender: FDA-Public Use
  Company Number: JP-BRISTOL-MYERS SQUIBB COMPANY-15606312

PATIENT

DRUGS (4)
  1. LEVOMEPROMAZINE [Concomitant]
  2. RISPERDAL [Suspect]
  3. OLANZAPINE [Concomitant]
  4. ABILIFY [Suspect]
     Indication: SCHIZOPHRENIA
     Dosage: ALSO 30MG
     Route: 048

REACTIONS (3)
  - THINKING ABNORMAL [None]
  - ANXIETY [None]
  - IRRITABILITY [None]
